FAERS Safety Report 11208391 (Version 2)
Quarter: 2015Q3

REPORT INFORMATION
  Report Type: Spontaneous
  Country: US (occurrence: US)
  Receive Date: 20150622
  Receipt Date: 20150701
  Transmission Date: 20151125
  Serious: Yes (Hospitalization, Disabling, Other)
  Sender: FDA-Public Use
  Company Number: US-009507513-1204USA00489

PATIENT
  Sex: Female

DRUGS (3)
  1. FOSAMAX PLUS D [Suspect]
     Active Substance: ALENDRONATE SODIUM\CHOLECALCIFEROL
     Indication: OSTEOPOROSIS
     Dosage: 70 MG, WEEKLY
     Route: 048
     Dates: start: 200705, end: 200909
  2. FOSAMAX [Suspect]
     Active Substance: ALENDRONATE SODIUM
     Indication: OSTEOPOROSIS
     Dosage: UNK
     Route: 048
     Dates: start: 1998
  3. FOSAMAX [Suspect]
     Active Substance: ALENDRONATE SODIUM
     Dosage: 70 MG, WEEKLY
     Route: 048
     Dates: end: 2007

REACTIONS (16)
  - Femur fracture [Recovered/Resolved]
  - Bone disorder [Unknown]
  - Pelvic fracture [Recovered/Resolved]
  - Intramedullary rod insertion [Unknown]
  - Osteoarthritis [Unknown]
  - Device lead damage [Unknown]
  - Joint arthroplasty [Unknown]
  - Scoliosis [Unknown]
  - Device breakage [Unknown]
  - Osteoporosis [Not Recovered/Not Resolved]
  - Metastases to bone [Unknown]
  - Pelvic fracture [Unknown]
  - Injury [Unknown]
  - Femur fracture [Recovered/Resolved]
  - Low turnover osteopathy [Not Recovered/Not Resolved]
  - Pelvic fracture [Unknown]

NARRATIVE: CASE EVENT DATE: 20060616
